FAERS Safety Report 10172128 (Version 1)
Quarter: 2014Q2

REPORT INFORMATION
  Report Type: Spontaneous
  Country: FR (occurrence: FR)
  Receive Date: 20140515
  Receipt Date: 20140515
  Transmission Date: 20141212
  Serious: Yes (Other)
  Sender: FDA-Public Use
  Company Number: PHHY2014FR056706

PATIENT
  Age: 80 Year
  Sex: Female

DRUGS (5)
  1. IRBESARTAN SANDOZ [Suspect]
     Indication: HYPERTENSION
     Route: 065
     Dates: end: 201404
  2. IRBESARTAN SANDOZ [Suspect]
     Dosage: 300 MG, QD
     Dates: start: 201404
  3. CORTANCYL [Concomitant]
     Dates: start: 1997
  4. VERAPAMIL [Concomitant]
     Route: 065
  5. CALTRATE [Concomitant]
     Route: 065

REACTIONS (4)
  - Cyanosis [Unknown]
  - Formication [Unknown]
  - Hypertension [Unknown]
  - Muscle spasms [Unknown]
